FAERS Safety Report 15294180 (Version 1)
Quarter: 2018Q3

REPORT INFORMATION
  Report Type: Spontaneous
  Country: US (occurrence: US)
  Receive Date: 20180807
  Receipt Date: 20180807
  Transmission Date: 20181010
  Serious: No
  Sender: FDA-Public Use
  Company Number: None

PATIENT
  Age: 58 Year
  Sex: Female
  Weight: 69.3 kg

DRUGS (22)
  1. VENTOLIN [Concomitant]
     Active Substance: ALBUTEROL SULFATE
  2. SYNTHROID [Concomitant]
     Active Substance: LEVOTHYROXINE SODIUM
  3. IMITREX [Concomitant]
     Active Substance: SUMATRIPTAN SUCCINATE
  4. EXCEDRIN [Concomitant]
     Active Substance: ACETAMINOPHEN\ASPIRIN\CAFFEINE
  5. POTASSIUM CHLORIDE. [Concomitant]
     Active Substance: POTASSIUM CHLORIDE
  6. MOTRIN [Concomitant]
     Active Substance: IBUPROFEN
  7. LASIX [Concomitant]
     Active Substance: FUROSEMIDE
  8. FIORICET [Concomitant]
     Active Substance: ACETAMINOPHEN\BUTALBITAL\CAFFEINE
  9. DEXAMETHASONE. [Concomitant]
     Active Substance: DEXAMETHASONE
  10. CAPECITABINE. [Suspect]
     Active Substance: CAPECITABINE
     Indication: LUNG NEOPLASM MALIGNANT
     Route: 048
     Dates: start: 20180725, end: 20180805
  11. OSCAL 500/200 D?3 [Concomitant]
  12. LEXAPRO [Concomitant]
     Active Substance: ESCITALOPRAM OXALATE
  13. AROMASIN [Concomitant]
     Active Substance: EXEMESTANE
  14. AVASTIN [Concomitant]
     Active Substance: BEVACIZUMAB
  15. TOPAMAX [Concomitant]
     Active Substance: TOPIRAMATE
  16. MAGNESIUM OXIDE. [Concomitant]
     Active Substance: MAGNESIUM OXIDE
  17. FLONASE [Concomitant]
     Active Substance: FLUTICASONE PROPIONATE
  18. CATAFLAM [Concomitant]
     Active Substance: DICLOFENAC POTASSIUM
  19. ZESTRIL [Concomitant]
     Active Substance: LISINOPRIL
  20. ULTRAM [Concomitant]
     Active Substance: TRAMADOL HYDROCHLORIDE
  21. TUSSIONEX PENNKINETIC [Concomitant]
     Active Substance: CHLORPHENIRAMINE\HYDROCODONE
  22. COZAAR [Concomitant]
     Active Substance: LOSARTAN POTASSIUM

REACTIONS (5)
  - Constipation [None]
  - Swelling face [None]
  - Diarrhoea [None]
  - Abdominal pain upper [None]
  - Rash macular [None]

NARRATIVE: CASE EVENT DATE: 20180725
